FAERS Safety Report 16086920 (Version 1)
Quarter: 2019Q1

REPORT INFORMATION
  Report Type: Spontaneous
  Country: US (occurrence: US)
  Receive Date: 20190318
  Receipt Date: 20190318
  Transmission Date: 20190418
  Serious: No
  Sender: FDA-Public Use
  Company Number: US-GLAXOSMITHKLINE-US2019045905

PATIENT
  Sex: Male

DRUGS (1)
  1. FLONASE SENSIMIST ALLERGY RELIEF [Suspect]
     Active Substance: FLUTICASONE FUROATE
     Indication: PRODUCT USED FOR UNKNOWN INDICATION
     Dosage: UNK

REACTIONS (9)
  - Ill-defined disorder [Unknown]
  - Condition aggravated [Unknown]
  - Ageusia [Unknown]
  - Pyrexia [Unknown]
  - Chills [Unknown]
  - Anosmia [Unknown]
  - Weight decreased [Unknown]
  - Malaise [Unknown]
  - Abdominal pain upper [Recovering/Resolving]
